FAERS Safety Report 9786388 (Version 1)
Quarter: 2013Q4

REPORT INFORMATION
  Report Type: Spontaneous
  Country: IT (occurrence: IT)
  Receive Date: 20131227
  Receipt Date: 20131227
  Transmission Date: 20140711
  Serious: Yes (Death)
  Sender: FDA-Public Use
  Company Number: IT-B.I. PHARMACEUTICALS,INC./RIDGEFIELD-2013-BI-43670IT

PATIENT
  Age: 87 Year
  Sex: Male
  Weight: 75 kg

DRUGS (3)
  1. PRADAXA [Suspect]
     Indication: ATRIAL FIBRILLATION
     Dosage: 300 MG
     Route: 048
     Dates: start: 20131104, end: 20131217
  2. TRIATEC [Concomitant]
     Indication: HYPERTENSION
     Dosage: DAILY DOSE : 1 POSOLOGIC UNIT
     Route: 048
     Dates: start: 20131113, end: 20131117
  3. LANTUS [Concomitant]
     Indication: DIABETES MELLITUS
     Route: 058
     Dates: start: 20131113, end: 20131117

REACTIONS (3)
  - Death [Fatal]
  - Cerebral haemorrhage [Fatal]
  - Syncope [Fatal]
